FAERS Safety Report 18338696 (Version 1)
Quarter: 2020Q4

REPORT INFORMATION
  Report Type: Spontaneous
  Country: IT (occurrence: IT)
  Receive Date: 20201002
  Receipt Date: 20201002
  Transmission Date: 20210113
  Serious: Yes (Hospitalization)
  Sender: FDA-Public Use
  Company Number: IT-PFIZER INC-2020376162

PATIENT
  Age: 13 Year
  Sex: Female
  Weight: 50 kg

DRUGS (2)
  1. XANAX [Suspect]
     Active Substance: ALPRAZOLAM
     Dosage: 50 DROP
     Route: 048
     Dates: start: 20200913, end: 20200913
  2. GUTTALAX [BISACODYL] [Suspect]
     Active Substance: BISACODYL
     Dosage: UNK

REACTIONS (3)
  - Accidental exposure to product [Recovering/Resolving]
  - Depressed level of consciousness [Recovering/Resolving]
  - Wrong product administered [Recovering/Resolving]

NARRATIVE: CASE EVENT DATE: 20200913
